FAERS Safety Report 6147304-2 (Version None)
Quarter: 2009Q2

REPORT INFORMATION
  Report Type: 
  Country: None (occurrence: None)
  Receive Date: 20090408
  Receipt Date: 20090330
  Transmission Date: 20091009
  Serious: Yes (Other)
  Sender: FDA-Public Use
  Company Number: FR-AVENTIS-200911375EU

PATIENT
  Age: 84 Year
  Sex: Female

DRUGS (5)
  1. FLUDEX                             /00340101/ [Suspect]
     Dosage: DOSE: UNK
     Route: 048
  2. PROPAFENONE HCL [Suspect]
  3. ACENOCOUMAROL [Suspect]
     Route: 048
  4. LISINOPRIL [Suspect]
     Route: 048
  5. CORTICOSTEROIDS [Concomitant]

REACTIONS (1)
  - PEMPHIGOID [None]
